FAERS Safety Report 16905088 (Version 1)
Quarter: 2019Q4

REPORT INFORMATION
  Report Type: Spontaneous
  Country: US (occurrence: US)
  Receive Date: 20191010
  Receipt Date: 20191010
  Transmission Date: 20200122
  Serious: Yes (Hospitalization)
  Sender: FDA-Public Use
  Company Number: None

PATIENT
  Age: 52 Year
  Sex: Female

DRUGS (12)
  1. ALPRAZOLAM TAB 0.5 MG [Concomitant]
  2. MORPHINE SUL TAB 15 MG ER [Concomitant]
  3. VICTOZA INJ 18 MG / 3 ML [Concomitant]
  4. CREON CAP 6000 UNIT [Concomitant]
  5. VANLAFAXINE CAP 37.5 ER [Concomitant]
  6. IBRANCE [Suspect]
     Active Substance: PALBOCICLIB
     Indication: BREAST CANCER FEMALE
     Route: 048
     Dates: start: 20190821
  7. LETROZOLE 2.5 MG TAB [Concomitant]
  8. TRESIBA FLEX 100 UNIT [Concomitant]
  9. DILTIAZEM CAP 180 MG [Concomitant]
  10. BENZONATATE CAP 100 MG [Concomitant]
  11. CEPHALEXIN CAP 500 MG [Concomitant]
  12. HYDROMORPHON TAB 2 MG [Concomitant]

REACTIONS (2)
  - Bronchitis [None]
  - Urinary tract infection [None]
